FAERS Safety Report 11158366 (Version 2)
Quarter: 2015Q2

REPORT INFORMATION
  Report Type: Report from Study
  Country: US (occurrence: US)
  Receive Date: 20150603
  Receipt Date: 20150630
  Transmission Date: 20150821
  Serious: Yes (Hospitalization, Other)
  Sender: FDA-Public Use
  Company Number: US-AMGEN-USASL2015053119

PATIENT
  Age: 69 Year
  Sex: Male

DRUGS (1)
  1. ENBREL [Suspect]
     Active Substance: ETANERCEPT
     Indication: RHEUMATOID ARTHRITIS
     Dosage: 50 MG, QWK
     Route: 065
     Dates: start: 19991201

REACTIONS (6)
  - Renal failure [Recovered/Resolved]
  - Injection site discomfort [Recovered/Resolved]
  - Weight increased [Recovered/Resolved]
  - Asthenia [Recovered/Resolved]
  - Pruritus [Recovered/Resolved]
  - Rheumatoid arthritis [Recovered/Resolved]

NARRATIVE: CASE EVENT DATE: 2013
